FAERS Safety Report 7280194-3 (Version None)
Quarter: 2011Q1

REPORT INFORMATION
  Report Type: 
  Country: None (occurrence: None)
  Receive Date: 20110208
  Receipt Date: 20110128
  Transmission Date: 20110831
  Serious: Yes (Hospitalization, Other)
  Sender: FDA-Public Use
  Company Number: IE-SANOFI-AVENTIS-2010SA074095

PATIENT
  Sex: Female

DRUGS (5)
  1. WARFARIN [Suspect]
     Indication: SURGERY
  2. FLOXACILLIN SODIUM [Suspect]
  3. ALL OTHER THERAPEUTIC PRODUCTS [Suspect]
     Indication: SURGERY
  4. WARFARIN [Suspect]
  5. MULTAQ [Suspect]
     Indication: ATRIAL FIBRILLATION
     Route: 048

REACTIONS (3)
  - RENAL FAILURE [None]
  - HEPATIC ENZYME INCREASED [None]
  - HEPATORENAL SYNDROME [None]
